FAERS Safety Report 5809720-5 (Version None)
Quarter: 2008Q3

REPORT INFORMATION
  Report Type: 
  Country: None (occurrence: None)
  Receive Date: 20080714
  Receipt Date: 20080714
  Transmission Date: 20090109
  Serious: Yes (Death)
  Sender: FDA-Public Use
  Company Number: None

PATIENT
  Sex: Male
  Weight: 76.2043 kg

DRUGS (1)
  1. ATRIPLA [Suspect]
     Indication: HIV INFECTION
     Dosage: 1 TAB QHS PO
     Route: 048
     Dates: start: 20080501, end: 20080513

REACTIONS (4)
  - BACK PAIN [None]
  - COMPLETED SUICIDE [None]
  - DIZZINESS [None]
  - GUN SHOT WOUND [None]
